FAERS Safety Report 24989775 (Version 1)
Quarter: 2025Q1

REPORT INFORMATION
  Report Type: Spontaneous
  Country: GB (occurrence: GB)
  Receive Date: 20250220
  Receipt Date: 20250220
  Transmission Date: 20250409
  Serious: Yes (Hospitalization, Other)
  Sender: RANBAXY
  Company Number: GB-MHRA-MED-202502021503515110-WPHLQ

PATIENT
  Age: 53 Year
  Sex: Female
  Weight: 68 kg

DRUGS (1)
  1. ATORVASTATIN [Suspect]
     Active Substance: ATORVASTATIN
     Indication: Product used for unknown indication
     Route: 065

REACTIONS (10)
  - Medication error [Unknown]
  - Vision blurred [Recovering/Resolving]
  - Hypoaesthesia oral [Recovered/Resolved]
  - Anal hypoaesthesia [Recovering/Resolving]
  - Hypoaesthesia [Not Recovered/Not Resolved]
  - Hypoaesthesia [Recovered/Resolved with Sequelae]
  - Paraesthesia oral [Recovering/Resolving]
  - Paraesthesia [Not Recovered/Not Resolved]
  - Tongue coated [Recovered/Resolved]
  - Immobile [Recovering/Resolving]

NARRATIVE: CASE EVENT DATE: 20231127
